FAERS Safety Report 4372591-0 (Version None)
Quarter: 2004Q2

REPORT INFORMATION
  Report Type: 
  Country: None (occurrence: None)
  Receive Date: 20040526
  Receipt Date: 20040517
  Transmission Date: 20050107
  Serious: Yes (Death)
  Sender: FDA-Public Use
  Company Number: 2004AP02741

PATIENT
  Age: 86 Year
  Sex: Male
  Weight: 55 kg

DRUGS (9)
  1. MEROPEN [Suspect]
     Indication: PNEUMONIA
     Dosage: 0.5 G BID IVD
     Route: 041
     Dates: start: 20031028, end: 20031101
  2. MEROPEN [Suspect]
     Indication: PNEUMONIA
     Dosage: 0.5 G BID IVD
     Route: 041
     Dates: start: 20031104, end: 20031105
  3. MEROPEN [Suspect]
     Indication: PNEUMONIA
     Dosage: 1 G BID IVD
     Route: 041
     Dates: start: 20031106, end: 20031110
  4. RADICUT [Concomitant]
  5. GASTER [Concomitant]
  6. VENOGLOBULIN [Concomitant]
  7. ALBUMIN (HUMAN) [Concomitant]
  8. LASIX [Concomitant]
  9. SOLU-MEDROL [Concomitant]

REACTIONS (7)
  - CONDITION AGGRAVATED [None]
  - DISSEMINATED INTRAVASCULAR COAGULATION [None]
  - FUNGAL INFECTION [None]
  - GENERAL PHYSICAL HEALTH DETERIORATION [None]
  - INTERSTITIAL LUNG DISEASE [None]
  - SEPSIS [None]
  - SHOCK [None]
